FAERS Safety Report 15143549 (Version 2)
Quarter: 2018Q3

REPORT INFORMATION
  Report Type: Spontaneous
  Country: US (occurrence: US)
  Receive Date: 20180713
  Receipt Date: 20180717
  Transmission Date: 20181010
  Serious: Yes (Other)
  Sender: FDA-Public Use
  Company Number: US-NOVOPROD-597379

PATIENT
  Age: 69 Year
  Sex: Female
  Weight: 60.77 kg

DRUGS (4)
  1. TRESIBA [Suspect]
     Active Substance: INSULIN DEGLUDEC
     Dosage: 15 U, QD EVERY MORNING
     Route: 058
  2. TRESIBA [Suspect]
     Active Substance: INSULIN DEGLUDEC
     Indication: TYPE 1 DIABETES MELLITUS
     Dosage: 25 U, QD EVERY MORNING
     Route: 058
     Dates: start: 2016
  3. HUMALOG [Concomitant]
     Active Substance: INSULIN LISPRO
     Indication: PRODUCT USED FOR UNKNOWN INDICATION
     Dosage: SLIDING SCALE
  4. HUMALOG [Concomitant]
     Active Substance: INSULIN LISPRO
     Dosage: 3 TO 5 U AT BREAKFAST, 4 U AT LUNCH, AND 6 U AT DINNER

REACTIONS (5)
  - Intentional dose omission [Unknown]
  - Blood glucose decreased [Recovered/Resolved]
  - Heart rate increased [Not Recovered/Not Resolved]
  - Carcinoid tumour [Unknown]
  - Blood glucose fluctuation [Not Recovered/Not Resolved]

NARRATIVE: CASE EVENT DATE: 2016
